FAERS Safety Report 9536688 (Version 1)
Quarter: 2013Q3

REPORT INFORMATION
  Report Type: Spontaneous
  Country: GB (occurrence: GB)
  Receive Date: 20130919
  Receipt Date: 20130919
  Transmission Date: 20140515
  Serious: Yes (Other)
  Sender: FDA-Public Use
  Company Number: GB-JNJFOC-20130908224

PATIENT
  Age: 43 Year
  Sex: Female

DRUGS (3)
  1. TOPIRAMATE [Suspect]
     Indication: MIGRAINE
     Route: 048
  2. AMITRIPTYLINE [Concomitant]
     Indication: MIGRAINE
     Route: 065
  3. PROPRANOLOL [Concomitant]
     Indication: MIGRAINE
     Route: 065

REACTIONS (1)
  - Retinal detachment [Unknown]
